FAERS Safety Report 10009315 (Version 2)
Quarter: 2014Q2

REPORT INFORMATION
  Report Type: Spontaneous
  Country: US (occurrence: US)
  Receive Date: 20140313
  Receipt Date: 20140416
  Transmission Date: 20141212
  Serious: Yes (Other)
  Sender: FDA-Public Use
  Company Number: CHPA2014US003832

PATIENT
  Age: 77 Year
  Sex: Female

DRUGS (2)
  1. GAS-X EXTSTR CHEWABLE TABS CHERRY CREME [Suspect]
     Indication: FLATULENCE
     Dosage: 2 DF, EARLY AFTERNOON, ONCE OR TWICE A WEEK
     Dates: start: 2013
  2. GAS-X ULTRA STRENGTH [Suspect]
     Indication: FLATULENCE
     Dosage: 2 DF, UNK
     Route: 048
     Dates: start: 2013, end: 201402

REACTIONS (2)
  - Urinary tract infection [Not Recovered/Not Resolved]
  - Drug ineffective [Unknown]
